FAERS Safety Report 6263674-9 (Version None)
Quarter: 2009Q3

REPORT INFORMATION
  Report Type: 
  Country: None (occurrence: None)
  Receive Date: 20090710
  Receipt Date: 20090629
  Transmission Date: 20100115
  Serious: Yes (Hospitalization, Other)
  Sender: FDA-Public Use
  Company Number: JP-PFIZER INC-2009220316

PATIENT
  Age: 58 Year

DRUGS (4)
  1. AZULFIDINE [Suspect]
     Indication: RHEUMATOID ARTHRITIS
     Dosage: UNK
     Route: 048
     Dates: start: 20090402, end: 20090408
  2. AZULFIDINE [Suspect]
     Dosage: UNK
     Dates: start: 20090409, end: 20090507
  3. LOXOPROFEN SODIUM [Concomitant]
     Route: 048
     Dates: start: 20090101
  4. ISALON [Concomitant]
     Route: 048
     Dates: start: 20090101

REACTIONS (1)
  - GRANULOCYTOSIS [None]
